FAERS Safety Report 7686624-7 (Version None)
Quarter: 2011Q3

REPORT INFORMATION
  Report Type: 
  Country: None (occurrence: None)
  Receive Date: 20110816
  Receipt Date: 20110816
  Transmission Date: 20111222
  Serious: Yes (Other)
  Sender: FDA-Public Use
  Company Number: None

PATIENT
  Age: 68 Year
  Sex: Male
  Weight: 89.811 kg

DRUGS (1)
  1. LEXAPRO [Suspect]
     Indication: DEPRESSION
     Dosage: 1 + 1/2 TABLETS
     Route: 048
     Dates: start: 20080101, end: 20110706

REACTIONS (6)
  - HYPERSOMNIA [None]
  - FEELING ABNORMAL [None]
  - DEPRESSION [None]
  - FEELINGS OF WORTHLESSNESS [None]
  - ANHEDONIA [None]
  - DEPRESSED MOOD [None]
